FAERS Safety Report 4991719-2 (Version None)
Quarter: 2006Q2

REPORT INFORMATION
  Report Type: 
  Country: None (occurrence: None)
  Receive Date: 20060504
  Receipt Date: 20060424
  Transmission Date: 20061013
  Serious: Yes (Disabling)
  Sender: FDA-Public Use
  Company Number: IL-GLAXOSMITHKLINE-B0421998A

PATIENT
  Sex: Female

DRUGS (1)
  1. ALKERAN [Suspect]
     Route: 065

REACTIONS (2)
  - AMPUTATION [None]
  - NECROSIS [None]
